FAERS Safety Report 10206405 (Version 1)
Quarter: 2014Q2

REPORT INFORMATION
  Report Type: Spontaneous
  Country: SE (occurrence: SE)
  Receive Date: 20140530
  Receipt Date: 20140530
  Transmission Date: 20141212
  Serious: Yes (Other)
  Sender: FDA-Public Use
  Company Number: SE-JNJFOC-20140513315

PATIENT
  Age: 53 Year
  Sex: Male

DRUGS (7)
  1. STELARA [Suspect]
     Indication: PSORIATIC ARTHROPATHY
     Dosage: WEEK 0, 4 AND 12
     Route: 058
     Dates: start: 20131104, end: 20140225
  2. ALFADIL [Concomitant]
     Route: 065
  3. AMLODIPINE [Concomitant]
     Route: 065
  4. SELOKENZOC [Concomitant]
     Route: 065
  5. SINGULAIR [Concomitant]
     Route: 065
  6. ENALAPRIL [Concomitant]
     Route: 065
  7. ALVEDON FORTE [Concomitant]
     Route: 065

REACTIONS (2)
  - Dyspnoea [Recovered/Resolved]
  - Cough [Recovered/Resolved]
